FAERS Safety Report 6790948-5 (Version None)
Quarter: 2010Q2

REPORT INFORMATION
  Report Type: 
  Country: None (occurrence: None)
  Receive Date: 20100520
  Receipt Date: 20080711
  Transmission Date: 20101027
  Serious: Yes (Other)
  Sender: FDA-Public Use
  Company Number: 2008062746

PATIENT
  Sex: Female

DRUGS (7)
  1. MEDROXYPROGESTERONE ACETATE [Suspect]
     Indication: HORMONE REPLACEMENT THERAPY
     Dosage: ORAL
     Route: 048
     Dates: start: 19950101, end: 19970101
  2. ESTROPIPATE [Suspect]
     Indication: HORMONE REPLACEMENT THERAPY
     Dosage: ORAL
     Route: 048
     Dates: start: 19960101, end: 19961101
  3. CYCRIN [Suspect]
     Indication: HORMONE REPLACEMENT THERAPY
     Dates: start: 19940101, end: 19950101
  4. ORTHO-EST [Suspect]
     Indication: HORMONE REPLACEMENT THERAPY
     Dates: start: 19940101, end: 19960101
  5. ESTRADIOL [Suspect]
     Indication: HORMONE REPLACEMENT THERAPY
     Dates: start: 19960101, end: 19980101
  6. PREMPHASE (PREMARIN;CYCRIN 14/14) [Suspect]
     Indication: HORMONE REPLACEMENT THERAPY
     Dates: start: 19980101
  7. PREMPRO [Suspect]
     Indication: HORMONE REPLACEMENT THERAPY
     Dates: start: 19980101, end: 20010101

REACTIONS (1)
  - BREAST CANCER FEMALE [None]
